FAERS Safety Report 24888803 (Version 1)
Quarter: 2025Q1

REPORT INFORMATION
  Report Type: Other
  Country: PT (occurrence: PT)
  Receive Date: 20250127
  Receipt Date: 20250127
  Transmission Date: 20250409
  Serious: Yes (Other)
  Sender: Kanchan Healthcare
  Company Number: PT-Kanchan Healthcare INC-2169868

PATIENT
  Age: 69 Year
  Sex: Male

DRUGS (5)
  1. CYCLOPHOSPHAMIDE [Suspect]
     Active Substance: CYCLOPHOSPHAMIDE
     Indication: T-cell lymphoma stage IV
  2. DOXORUBICIN HYDROCHLORIDE [Suspect]
     Active Substance: DOXORUBICIN HYDROCHLORIDE
  3. HYDROXYUREA [Concomitant]
     Active Substance: HYDROXYUREA
  4. PREDNISOLONE [Suspect]
     Active Substance: PREDNISOLONE
  5. ONCOVIN [Suspect]
     Active Substance: VINCRISTINE SULFATE

REACTIONS (1)
  - Spontaneous bacterial peritonitis [Recovered/Resolved]
